FAERS Safety Report 11538823 (Version 1)
Quarter: 2015Q3

REPORT INFORMATION
  Report Type: Spontaneous
  Country: US (occurrence: US)
  Receive Date: 20150923
  Receipt Date: 20150923
  Transmission Date: 20151125
  Serious: Yes (Hospitalization, Other)
  Sender: FDA-Public Use
  Company Number: US-PAR PHARMACEUTICAL COMPANIES-2015SCPR014295

PATIENT

DRUGS (2)
  1. BUPROPION HCL XL [Suspect]
     Active Substance: BUPROPION HYDROCHLORIDE
     Indication: PRODUCT USED FOR UNKNOWN INDICATION
     Dosage: 1500 MG, UNKNOWN
     Route: 048
  2. CLONIDINE. [Interacting]
     Active Substance: CLONIDINE
     Indication: PRODUCT USED FOR UNKNOWN INDICATION
     Dosage: 2.4 MG, UNKNOWN
     Route: 048

REACTIONS (16)
  - Tremor [Recovered/Resolved]
  - Miosis [Recovered/Resolved]
  - Sinus bradycardia [Recovered/Resolved]
  - Generalised tonic-clonic seizure [None]
  - Sympathomimetic effect [Recovered/Resolved]
  - Somnolence [Recovered/Resolved]
  - Mydriasis [None]
  - Anxiety [Recovered/Resolved]
  - Sedation [Recovered/Resolved]
  - Toxicity to various agents [None]
  - Suicide attempt [Unknown]
  - Intentional overdose [None]
  - Hypertension [None]
  - Nausea [Recovered/Resolved]
  - Inhibitory drug interaction [Unknown]
  - Overdose [Unknown]
